FAERS Safety Report 6374689-4 (Version None)
Quarter: 2009Q3

REPORT INFORMATION
  Report Type: 
  Country: None (occurrence: None)
  Receive Date: 20090924
  Receipt Date: 20090922
  Transmission Date: 20100115
  Serious: Yes (Hospitalization)
  Sender: FDA-Public Use
  Company Number: FI-BRISTOL-MYERS SQUIBB COMPANY-14759575

PATIENT
  Age: 60 Year
  Sex: Male

DRUGS (7)
  1. METFORMIN HCL [Suspect]
     Indication: DIABETES MELLITUS
     Dosage: LAST DOSE:21JUN09
     Route: 065
     Dates: start: 20060401
  2. GLIMEPIRIDE [Suspect]
     Indication: DIABETES MELLITUS
     Dosage: LAST DOSE:21JUN09
     Route: 065
     Dates: start: 20061011
  3. ZOCOR [Concomitant]
     Indication: HYPERCHOLESTEROLAEMIA
  4. NITROSID [Concomitant]
     Indication: CORONARY ARTERY DISEASE
     Dates: start: 20060709
  5. COZAAR [Concomitant]
     Indication: HYPERTENSION
  6. EMCONCOR [Concomitant]
     Indication: HYPERTENSION
  7. LANSOPRAZOLE [Concomitant]
     Indication: OESOPHAGITIS

REACTIONS (1)
  - BLADDER CANCER [None]
